FAERS Safety Report 9742794 (Version 1)
Quarter: 2013Q4

REPORT INFORMATION
  Report Type: Spontaneous
  Country: US (occurrence: US)
  Receive Date: 20131210
  Receipt Date: 20131210
  Transmission Date: 20140711
  Serious: No
  Sender: FDA-Public Use
  Company Number: US-ENDO PHARMACEUTICALS INC.-BACL20120004

PATIENT
  Sex: Male

DRUGS (5)
  1. BACLOFEN [Suspect]
     Indication: MULTIPLE SCLEROSIS
     Route: 048
     Dates: start: 2006
  2. BACLOFEN [Suspect]
     Indication: MUSCLE SPASTICITY
     Route: 048
  3. AMITRIPTYLINE [Suspect]
     Indication: VERTIGO
     Dosage: UNKNOWN
     Route: 048
  4. CLONAZEPAM [Suspect]
     Indication: VERTIGO
     Dosage: UNKNOWN
     Route: 048
  5. BACLOFEN [Suspect]
     Indication: MUSCLE SPASTICITY
     Dosage: UNKNOWN
     Route: 037
     Dates: start: 20111222

REACTIONS (8)
  - Speech disorder [Not Recovered/Not Resolved]
  - Vertigo [Not Recovered/Not Resolved]
  - Balance disorder [Not Recovered/Not Resolved]
  - Asthenia [Not Recovered/Not Resolved]
  - Tinnitus [Not Recovered/Not Resolved]
  - Dizziness [Not Recovered/Not Resolved]
  - Nausea [Not Recovered/Not Resolved]
  - Drug ineffective [Not Recovered/Not Resolved]
